FAERS Safety Report 6332196-9 (Version None)
Quarter: 2009Q3

REPORT INFORMATION
  Report Type: 
  Country: None (occurrence: None)
  Receive Date: 20090828
  Receipt Date: 20090818
  Transmission Date: 20100115
  Serious: Yes (Hospitalization)
  Sender: FDA-Public Use
  Company Number: SE-PFIZER INC-2009256016

PATIENT
  Age: 76 Year

DRUGS (14)
  1. DIFLUCAN [Suspect]
     Indication: ORAL FUNGAL INFECTION
     Dosage: 100 MG/24H, 1X/DAY
     Dates: start: 20090303, end: 20090312
  2. FENTANYL [Interacting]
     Dosage: PATCH 25 MICROG/HOUR, UNK
     Route: 062
     Dates: end: 20090306
  3. FURADANTIN [Concomitant]
     Dosage: UNK
     Dates: start: 20090304
  4. DALACIN [Concomitant]
     Dosage: 300 MG, 1X/DAY
  5. NOVORAPID [Concomitant]
     Dosage: PREFILLED PEN 100 IU/ML
  6. PAMOL [Concomitant]
  7. METOPROLOL [Concomitant]
  8. IMPUGAN [Concomitant]
     Dosage: 50 MG, 1X/DAY
  9. SPIRONOLACTONE [Concomitant]
     Dosage: 25 MG, 1X/DAY
     Route: 048
  10. ASPIRIN [Concomitant]
     Dosage: 75 MG, 1X/DAY
  11. IMDUR [Concomitant]
     Dosage: 30 MG, 1X/DAY
     Route: 048
  12. FORLAX [Concomitant]
     Dosage: SACHET 10 G
     Route: 048
  13. SODIUM PICOSULFATE [Concomitant]
     Dosage: 7.5 MG/ML, 1X/DAY
     Route: 047
  14. NOVOMIX [Concomitant]
     Dosage: PREFILLED PEN 100 IU/ML

REACTIONS (1)
  - RESPIRATORY DEPRESSION [None]
